FAERS Safety Report 15636041 (Version 1)
Quarter: 2018Q4

REPORT INFORMATION
  Report Type: Report from Study
  Country: DE (occurrence: DE)
  Receive Date: 20181120
  Receipt Date: 20181120
  Transmission Date: 20190205
  Serious: Yes (Hospitalization)
  Sender: FDA-Public Use
  Company Number: DE-ROCHE-2214717

PATIENT
  Age: 39 Year
  Sex: Male
  Weight: 69.9 kg

DRUGS (1)
  1. VENETOCLAX. [Suspect]
     Active Substance: VENETOCLAX
     Indication: PRODUCT USED FOR UNKNOWN INDICATION
     Route: 065

REACTIONS (1)
  - Hypophosphataemia [Recovered/Resolved]

NARRATIVE: CASE EVENT DATE: 20181031
